FAERS Safety Report 17163465 (Version 1)
Quarter: 2019Q4

REPORT INFORMATION
  Report Type: Other
  Country: MY (occurrence: MY)
  Receive Date: 20191217
  Receipt Date: 20191217
  Transmission Date: 20200122
  Serious: Yes (Other)
  Sender: FDA-Public Use
  Company Number: MY-MACLEODS PHARMACEUTICALS US LTD-MAC2019024482

PATIENT

DRUGS (1)
  1. LAMIZIDO 150/300 (LAMIVUDINE 150 MG + ZIDOVUDINE 300 MG TABLETS) [Suspect]
     Active Substance: LAMIVUDINE\ZIDOVUDINE
     Indication: HIV INFECTION
     Dosage: 900 MILLIGRAM, BID
     Route: 048

REACTIONS (1)
  - Pancytopenia [Recovering/Resolving]
